FAERS Safety Report 5113752-2 (Version None)
Quarter: 2006Q3

REPORT INFORMATION
  Report Type: 
  Country: None (occurrence: None)
  Receive Date: 20060920
  Receipt Date: 20060905
  Transmission Date: 20061208
  Serious: Yes (Other)
  Sender: FDA-Public Use
  Company Number: FR-2006-027140

PATIENT
  Age: 93 Year
  Sex: Male
  Weight: 73 kg

DRUGS (7)
  1. SOTALOL HYDROCHLORIDE [Suspect]
     Indication: ESSENTIAL HYPERTENSION
     Dosage: ORAL
     Route: 048
     Dates: end: 20060722
  2. CALCIPARINE [Suspect]
     Dosage: 0.2, 2X/DAY, SUBCUTANEOUS
     Route: 058
     Dates: start: 20060703, end: 20060717
  3. ATARAX [Concomitant]
  4. PANTOPRAZOLE SODIUM [Concomitant]
  5. OLICLIMONEL [Concomitant]
  6. NEXIUM [Concomitant]
  7. ESCITALOPRAM OXALATE [Suspect]
     Dosage: INTRAVENOUS
     Route: 042
     Dates: start: 20060711, end: 20060717

REACTIONS (3)
  - PURPURA NON-THROMBOCYTOPENIC [None]
  - SKIN DISCOLOURATION [None]
  - SKIN LESION [None]
